FAERS Safety Report 9951762 (Version 1)
Quarter: 2014Q1

REPORT INFORMATION
  Report Type: Report from Study
  Country: US (occurrence: US)
  Receive Date: 20140304
  Receipt Date: 20140304
  Transmission Date: 20141002
  Serious: No
  Sender: FDA-Public Use
  Company Number: US-ABBVIE-13P-163-1079521-00

PATIENT
  Age: 62 Year
  Sex: Male

DRUGS (5)
  1. HUMIRA [Suspect]
     Indication: PSORIASIS
     Dosage: LOADING DOSE
     Route: 058
     Dates: start: 20130412, end: 20130412
  2. HUMIRA [Suspect]
     Route: 058
  3. DOXYCYCLINE [Concomitant]
     Indication: ROSACEA
     Dosage: 100 MG DAILY
  4. MELATONIN [Concomitant]
     Indication: INSOMNIA
  5. FLUOCINONIDE [Concomitant]
     Indication: PSORIASIS
     Dosage: DAILY
     Route: 061

REACTIONS (2)
  - Diarrhoea [Not Recovered/Not Resolved]
  - Vomiting [Recovered/Resolved]
